FAERS Safety Report 10026365 (Version 2)
Quarter: 2014Q1

REPORT INFORMATION
  Report Type: Spontaneous
  Country: US (occurrence: US)
  Receive Date: 20140321
  Receipt Date: 20140321
  Transmission Date: 20141002
  Serious: No
  Sender: FDA-Public Use
  Company Number: US-ALLERGAN-1311937US

PATIENT
  Age: 78 Year
  Sex: Male

DRUGS (7)
  1. LUMIGAN [Suspect]
     Indication: GLAUCOMA
     Dosage: 2 GTT, QHS
     Route: 047
     Dates: start: 2012
  2. ATORVASTATIN [Concomitant]
     Indication: PRODUCT USED FOR UNKNOWN INDICATION
     Dosage: 20 MG, QD
     Route: 048
  3. CLOPIDOGREL [Concomitant]
     Indication: PRODUCT USED FOR UNKNOWN INDICATION
     Dosage: 75 MG, QD
     Route: 048
  4. METOPROLOL [Concomitant]
     Indication: PRODUCT USED FOR UNKNOWN INDICATION
     Dosage: 25 MG, QD
     Route: 048
  5. BENICAR [Concomitant]
     Indication: PRODUCT USED FOR UNKNOWN INDICATION
     Dosage: 10 MG, QD
     Route: 048
  6. SYNTHROID [Concomitant]
     Indication: PRODUCT USED FOR UNKNOWN INDICATION
     Dosage: 50 MG, QD
     Route: 048
  7. ASA [Concomitant]
     Indication: PRODUCT USED FOR UNKNOWN INDICATION
     Dosage: UNK, QD
     Route: 048

REACTIONS (4)
  - Corrective lens user [Recovering/Resolving]
  - Visual acuity reduced [Recovering/Resolving]
  - Vision blurred [Recovering/Resolving]
  - Vision blurred [Recovering/Resolving]
